FAERS Safety Report 24106926 (Version 2)
Quarter: 2024Q4

REPORT INFORMATION
  Report Type: Other
  Country: PK (occurrence: None)
  Receive Date: 20240717
  Receipt Date: 20241005
  Transmission Date: 20250114
  Serious: Yes (Hospitalization, Other)
  Sender: SQUARE PHARMACEUTICALS
  Company Number: PK-Square Pharmaceuticals PLC-000037

PATIENT
  Age: 50 Year
  Sex: Male

DRUGS (6)
  1. ACYCLOVIR [Suspect]
     Active Substance: ACYCLOVIR
     Indication: Herpes zoster
     Dosage: 800 MG FOR ONE WEEK
     Route: 048
  2. AMITRIPTYLINE [Concomitant]
     Active Substance: AMITRIPTYLINE
     Indication: Product used for unknown indication
  3. GABAPENTIN [Concomitant]
     Active Substance: GABAPENTIN
     Indication: Product used for unknown indication
  4. TANZO [Concomitant]
     Indication: Product used for unknown indication
     Dosage: 4.5 GRAMS
  5. POLYFAX PLUS [Concomitant]
     Indication: Product used for unknown indication
  6. ACYCLOVIR [Suspect]
     Active Substance: ACYCLOVIR
     Indication: Herpes zoster
     Dosage: 500 MG

REACTIONS (5)
  - Treatment failure [Recovered/Resolved]
  - Acute kidney injury [Recovered/Resolved]
  - Skin lesion [Recovered/Resolved]
  - Condition aggravated [Recovered/Resolved]
  - Haemorrhage [Recovered/Resolved]
